FAERS Safety Report 8001060-1 (Version None)
Quarter: 2011Q4

REPORT INFORMATION
  Report Type: 
  Country: None (occurrence: None)
  Receive Date: 20111222
  Receipt Date: 20111007
  Transmission Date: 20120403
  Serious: No
  Sender: FDA-Public Use
  Company Number: US-GLAXOSMITHKLINE-A0948822A

PATIENT
  Sex: Male

DRUGS (2)
  1. NASONEX [Suspect]
     Indication: SEASONAL ALLERGY
     Route: 045
  2. FLONASE [Suspect]
     Indication: SEASONAL ALLERGY
     Route: 045

REACTIONS (1)
  - NASAL DISCOMFORT [None]
